FAERS Safety Report 19938036 (Version 1)
Quarter: 2021Q4

REPORT INFORMATION
  Report Type: Spontaneous
  Country: US (occurrence: US)
  Receive Date: 20211011
  Receipt Date: 20211011
  Transmission Date: 20220304
  Serious: No
  Sender: FDA-Public Use
  Company Number: US-ROCHE-2754549

PATIENT
  Sex: Female

DRUGS (7)
  1. ZELBORAF [Suspect]
     Active Substance: VEMURAFENIB
     Indication: Metastasis
     Route: 048
  2. COTELLIC [Suspect]
     Active Substance: COBIMETINIB
     Indication: Metastasis
     Dosage: ONCE DAILY FOR 21 DAYS DAYS ON AND 7 DAYS OFF, THEN REPEAT
     Route: 048
  3. TIMOLOL [Concomitant]
     Active Substance: TIMOLOL
  4. LUMIGAN [Concomitant]
     Active Substance: BIMATOPROST
  5. AZOPT [Concomitant]
     Active Substance: BRINZOLAMIDE
  6. ALPHAGAN P [Concomitant]
     Active Substance: BRIMONIDINE TARTRATE
  7. ALLEGRA [Concomitant]
     Active Substance: FEXOFENADINE HYDROCHLORIDE

REACTIONS (1)
  - Peripheral swelling [Not Recovered/Not Resolved]
